FAERS Safety Report 4964928-6 (Version None)
Quarter: 2006Q1

REPORT INFORMATION
  Report Type: 
  Country: None (occurrence: None)
  Receive Date: 20060207
  Receipt Date: 20050404
  Transmission Date: 20060701
  Serious: Yes (Hospitalization)
  Sender: FDA-Public Use
  Company Number: 242003

PATIENT
  Age: 62 Year
  Sex: Female
  Weight: 52.2 kg

DRUGS (7)
  1. NOVOLOG [Suspect]
     Indication: DIABETES MELLITUS INSULIN-DEPENDENT
     Dosage: 6-8 IU, BID, SUBCUTANEOUS
     Route: 058
     Dates: start: 20020101, end: 20020101
  2. ERYTHROCIN [Concomitant]
  3. OSCAL (CALCIUM CARBONATE) [Concomitant]
  4. RANITIDINE [Concomitant]
  5. FUROSEMIDE [Concomitant]
  6. NORVASC /DEN/ (AMLODIPINE BESILATE) [Concomitant]
  7. AMITRIPTYLINE HCL [Concomitant]

REACTIONS (1)
  - BLOOD GLUCOSE INCREASED [None]
